FAERS Safety Report 19096555 (Version 2)
Quarter: 2021Q2

REPORT INFORMATION
  Report Type: Spontaneous
  Country: US (occurrence: US)
  Receive Date: 20210406
  Receipt Date: 20210518
  Transmission Date: 20210717
  Serious: No
  Sender: FDA-Public Use
  Company Number: US-PFIZER INC-2021191819

PATIENT
  Age: 64 Year
  Sex: Female
  Weight: 63.49 kg

DRUGS (1)
  1. DUAVEE [Suspect]
     Active Substance: BAZEDOXIFENE ACETATE\ESTROGENS, CONJUGATED
     Indication: MENOPAUSE
     Dosage: 0.5 MG
     Dates: start: 2018

REACTIONS (5)
  - Emotional disorder [Unknown]
  - Weight increased [Unknown]
  - Migraine [Unknown]
  - Irritability [Unknown]
  - Product prescribing error [Unknown]
